FAERS Safety Report 7945772-4 (Version None)
Quarter: 2011Q4

REPORT INFORMATION
  Report Type: 
  Country: None (occurrence: None)
  Receive Date: 20111129
  Receipt Date: 20111121
  Transmission Date: 20120403
  Serious: Yes (Death, Hospitalization)
  Sender: FDA-Public Use
  Company Number: ES-ROCHE-1015391

PATIENT
  Age: 54 Year
  Sex: Female

DRUGS (2)
  1. OXALIPLATIN [Concomitant]
  2. XELODA [Suspect]
     Indication: GASTRIC CANCER
     Route: 048
     Dates: start: 20110509, end: 20110511

REACTIONS (3)
  - CARDIOTOXICITY [None]
  - COMA [None]
  - SHOCK [None]
